FAERS Safety Report 18820610 (Version 1)
Quarter: 2021Q1

REPORT INFORMATION
  Report Type: Report from Study
  Country: IT (occurrence: IT)
  Receive Date: 20210202
  Receipt Date: 20210202
  Transmission Date: 20210419
  Serious: Yes (Life-Threatening, Hospitalization, Other)
  Sender: FDA-Public Use
  Company Number: IT-ACCORD-216275

PATIENT

DRUGS (3)
  1. OXALIPLATIN. [Suspect]
     Active Substance: OXALIPLATIN
     Indication: GASTROENTEROPANCREATIC NEUROENDOCRINE TUMOUR DISEASE
  2. FLUOROURACIL. [Suspect]
     Active Substance: FLUOROURACIL
     Indication: GASTROENTEROPANCREATIC NEUROENDOCRINE TUMOUR DISEASE
     Dosage: BOLUS PLUS FLUOROURACIL 600 MG/M, 22 HOUR CONTINUOUS INFUSION PUMP
  3. FOLINIC ACID [Suspect]
     Active Substance: LEUCOVORIN
     Indication: GASTROENTEROPANCREATIC NEUROENDOCRINE TUMOUR DISEASE
     Dosage: 30 MINUTE INFUSION

REACTIONS (2)
  - Off label use [Unknown]
  - Sepsis [Recovered/Resolved]
